FAERS Safety Report 20680869 (Version 1)
Quarter: 2022Q2

REPORT INFORMATION
  Report Type: Spontaneous
  Country: PT (occurrence: PT)
  Receive Date: 20220406
  Receipt Date: 20220406
  Transmission Date: 20220721
  Serious: Yes (Hospitalization, Other)
  Sender: FDA-Public Use
  Company Number: PT-NOVARTISPH-NVSC2022PT078197

PATIENT
  Age: 25 Year
  Sex: Female

DRUGS (1)
  1. ADALIMUMAB [Suspect]
     Active Substance: ADALIMUMAB
     Indication: Product used for unknown indication
     Dosage: UNK
     Route: 065

REACTIONS (8)
  - Peritonitis [Unknown]
  - Pelvic abscess [Unknown]
  - Pyrexia [Unknown]
  - Pleural effusion [Unknown]
  - Colitis ulcerative [Unknown]
  - Granulomatous lymphadenitis [Unknown]
  - Pulmonary tuberculosis [Unknown]
  - Tuberculosis [Unknown]
